FAERS Safety Report 18789522 (Version 1)
Quarter: 2021Q1

REPORT INFORMATION
  Report Type: Spontaneous
  Country: TH (occurrence: TH)
  Receive Date: 20210126
  Receipt Date: 20210126
  Transmission Date: 20210419
  Serious: Yes (Other)
  Sender: FDA-Public Use
  Company Number: TH-BAYER-2021-031246

PATIENT

DRUGS (1)
  1. GADOVIST [Suspect]
     Active Substance: GADOBUTROL
     Indication: MAGNETIC RESONANCE IMAGING
     Dosage: 7.5 ML, ONCE

REACTIONS (4)
  - Erythema [Recovering/Resolving]
  - Flushing [Recovering/Resolving]
  - Angina pectoris [None]
  - Dyspnoea [Recovering/Resolving]
